FAERS Safety Report 5755991-3 (Version None)
Quarter: 2008Q2

REPORT INFORMATION
  Report Type: 
  Country: None (occurrence: None)
  Receive Date: 20080602
  Receipt Date: 20080318
  Transmission Date: 20081010
  Serious: No
  Sender: FDA-Public Use
  Company Number: US-ABBOTT-08P-163-0443182-00

PATIENT
  Sex: Female
  Weight: 124.85 kg

DRUGS (2)
  1. ZEMPLAR [Suspect]
     Indication: RENAL IMPAIRMENT
     Route: 048
     Dates: start: 20080101
  2. CALCITRIOL [Concomitant]
     Indication: RENAL IMPAIRMENT
     Route: 048
     Dates: start: 20060101

REACTIONS (2)
  - EYE PAIN [None]
  - HEADACHE [None]
